FAERS Safety Report 8307607-X (Version None)
Quarter: 2012Q2

REPORT INFORMATION
  Report Type: 
  Country: None (occurrence: None)
  Receive Date: 20120424
  Receipt Date: 20120413
  Transmission Date: 20120825
  Serious: Yes (Other)
  Sender: FDA-Public Use
  Company Number: US-PFIZER INC-2012092883

PATIENT
  Age: 10 Year
  Sex: Male

DRUGS (1)
  1. VIAGRA [Suspect]
     Dosage: UNK

REACTIONS (6)
  - SWELLING [None]
  - RASH [None]
  - ACCIDENTAL DRUG INTAKE BY CHILD [None]
  - ERECTION INCREASED [None]
  - GENITAL RASH [None]
  - PENILE PAIN [None]
